FAERS Safety Report 11754201 (Version 1)
Quarter: 2015Q4

REPORT INFORMATION
  Report Type: Spontaneous
  Country: US (occurrence: None)
  Receive Date: 20151118
  Receipt Date: 20151118
  Transmission Date: 20160304
  Serious: Yes (Hospitalization)
  Sender: FDA-Public Use
  Company Number: None

PATIENT
  Age: 76 Year
  Sex: Male
  Weight: 58.3 kg

DRUGS (2)
  1. FLUOROURACIL. [Suspect]
     Active Substance: FLUOROURACIL
     Indication: OESOPHAGEAL ADENOCARCINOMA
     Route: 042
     Dates: start: 20100107, end: 20100107
  2. OXALIPLATIN. [Suspect]
     Active Substance: OXALIPLATIN
     Indication: OESOPHAGEAL ADENOCARCINOMA
     Route: 042
     Dates: start: 20100107, end: 20100107

REACTIONS (5)
  - Leukopenia [None]
  - Aortic stenosis [None]
  - Diarrhoea [None]
  - Fatigue [None]
  - Anaemia [None]

NARRATIVE: CASE EVENT DATE: 20100107
